FAERS Safety Report 18610735 (Version 1)
Quarter: 2020Q4

REPORT INFORMATION
  Report Type: Spontaneous
  Country: US (occurrence: US)
  Receive Date: 20201211
  Receipt Date: 20201211
  Transmission Date: 20210114
  Serious: Yes (Other)
  Sender: FDA-Public Use
  Company Number: None

PATIENT
  Age: 54 Year
  Sex: Female
  Weight: 70.65 kg

DRUGS (3)
  1. TRULICITY [Suspect]
     Active Substance: DULAGLUTIDE
     Indication: DIABETES MELLITUS
     Dates: start: 20200210, end: 20200804
  2. LANTUS [Concomitant]
     Active Substance: INSULIN GLARGINE
  3. JAURDIANCE [Concomitant]

REACTIONS (2)
  - Gastritis [None]
  - Quality of life decreased [None]
